FAERS Safety Report 5463264-1 (Version None)
Quarter: 2007Q2

REPORT INFORMATION
  Report Type: 
  Country: None (occurrence: None)
  Receive Date: 20070221
  Receipt Date: 20061106
  Transmission Date: 20071010
  Serious: Yes (Hospitalization)
  Sender: FDA-Public Use
  Company Number: 2006BH014479

PATIENT
  Age: 14 Year
  Sex: Male
  Weight: 30.391 kg

DRUGS (2)
  1. GAMMAGARD LIQUID [Suspect]
     Indication: IMMUNE SYSTEM DISORDER
     Dosage: 30 GM; EVERY 4 WK; IV
     Route: 042
     Dates: start: 20061010
  2. GAMMAGARD LIQUID [Suspect]

REACTIONS (2)
  - HEADACHE [None]
  - PYREXIA [None]
